FAERS Safety Report 4427611-1 (Version None)
Quarter: 2004Q3

REPORT INFORMATION
  Report Type: 
  Country: None (occurrence: None)
  Receive Date: 20040817
  Receipt Date: 20040205
  Transmission Date: 20050211
  Serious: Yes (Other)
  Sender: FDA-Public Use
  Company Number: US-MERCK-0402USA00709

PATIENT
  Age: 39 Year
  Sex: Female
  Weight: 75 kg

DRUGS (1)
  1. VIOXX [Suspect]
     Indication: LIMB INJURY
     Route: 048
     Dates: start: 20020701, end: 20021101

REACTIONS (41)
  - AGORAPHOBIA [None]
  - ANGER [None]
  - ANXIETY [None]
  - ARTHRALGIA [None]
  - ASTHENIA [None]
  - CEREBROVASCULAR ACCIDENT [None]
  - CERVIX CARCINOMA [None]
  - CONDYLOMA ACUMINATUM [None]
  - CRYING [None]
  - DEPRESSION [None]
  - DISTURBANCE IN ATTENTION [None]
  - DYSKINESIA [None]
  - DYSPNOEA [None]
  - EXCORIATION [None]
  - FATIGUE [None]
  - FEAR [None]
  - HYPERSOMNIA [None]
  - HYPERTENSION [None]
  - INCREASED APPETITE [None]
  - IRRITABILITY [None]
  - JOINT INJURY [None]
  - JOINT RANGE OF MOTION DECREASED [None]
  - JOINT STIFFNESS [None]
  - LEARNING DISORDER [None]
  - MENTAL IMPAIRMENT [None]
  - MOOD SWINGS [None]
  - MUSCULOSKELETAL STIFFNESS [None]
  - OBESITY [None]
  - PANIC DISORDER [None]
  - PERSONALITY DISORDER [None]
  - POST PROCEDURAL HAEMORRHAGE [None]
  - POST-TRAUMATIC STRESS DISORDER [None]
  - READING DISORDER [None]
  - ROAD TRAFFIC ACCIDENT [None]
  - SLEEP APNOEA SYNDROME [None]
  - SOCIAL AVOIDANT BEHAVIOUR [None]
  - SWELLING FACE [None]
  - TREMOR [None]
  - TUBERCULOSIS [None]
  - VISION BLURRED [None]
  - WEIGHT INCREASED [None]
